FAERS Safety Report 4562562-3 (Version None)
Quarter: 2005Q1

REPORT INFORMATION
  Report Type: 
  Country: None (occurrence: None)
  Receive Date: 20050127
  Receipt Date: 20050114
  Transmission Date: 20050727
  Serious: Yes (Death, Other)
  Sender: FDA-Public Use
  Company Number: US-MERCK-0501USA03716

PATIENT
  Age: 15 Year
  Sex: Female

DRUGS (5)
  1. ELSPAR [Suspect]
     Indication: ACUTE LYMPHOCYTIC LEUKAEMIA
     Route: 030
     Dates: start: 19790101
  2. VINCRISTINE SULFATE [Concomitant]
     Route: 065
  3. DAUNORUBICIN [Concomitant]
     Route: 065
  4. METHOTREXATE [Concomitant]
     Route: 065
  5. PREDNISONE [Concomitant]
     Route: 065

REACTIONS (6)
  - DEATH [None]
  - DIABETES MELLITUS [None]
  - HYPERSENSITIVITY [None]
  - LEUKAEMIA RECURRENT [None]
  - PANCREATITIS [None]
  - RENAL FAILURE ACUTE [None]
